FAERS Safety Report 6980856-9 (Version None)
Quarter: 2010Q3

REPORT INFORMATION
  Report Type: 
  Country: None (occurrence: None)
  Receive Date: 20100914
  Receipt Date: 20100910
  Transmission Date: 20110219
  Serious: Yes (Death)
  Sender: FDA-Public Use
  Company Number: US-SANOFI-AVENTIS-2010SA054792

PATIENT
  Age: 43 Year
  Sex: Female

DRUGS (3)
  1. LOVENOX [Suspect]
     Route: 065
  2. LOVENOX [Suspect]
     Indication: PULMONARY EMBOLISM
     Route: 065
  3. COUMADIN [Concomitant]

REACTIONS (1)
  - DEATH [None]
